FAERS Safety Report 14964041 (Version 8)
Quarter: 2019Q4

REPORT INFORMATION
  Report Type: Report from Study
  Country: CA (occurrence: CA)
  Receive Date: 20180601
  Receipt Date: 20191224
  Transmission Date: 20200122
  Serious: Yes (Hospitalization, Other)
  Sender: FDA-Public Use
  Company Number: CA-BRISTOL-MYERS SQUIBB COMPANY-BMS-2017-098862

PATIENT
  Age: 63 Year
  Sex: Female

DRUGS (1)
  1. ABATACEPT [Suspect]
     Active Substance: ABATACEPT
     Indication: RHEUMATOID ARTHRITIS
     Dosage: 750 MG, Q4WK
     Route: 042
     Dates: start: 20150716

REACTIONS (12)
  - Sneezing [Unknown]
  - Gastroenteritis [Unknown]
  - Rhinorrhoea [Unknown]
  - Type 2 diabetes mellitus [Not Recovered/Not Resolved]
  - Cough [Unknown]
  - Sciatica [Unknown]
  - Rib fracture [Unknown]
  - Nasopharyngitis [Unknown]
  - Pyrexia [Unknown]
  - Influenza like illness [Unknown]
  - Nasal congestion [Unknown]
  - Increased upper airway secretion [Unknown]

NARRATIVE: CASE EVENT DATE: 20171026
